FAERS Safety Report 25215841 (Version 1)
Quarter: 2025Q2

REPORT INFORMATION
  Report Type: Spontaneous
  Country: US (occurrence: US)
  Receive Date: 20250418
  Receipt Date: 20250418
  Transmission Date: 20250717
  Serious: Yes (Other)
  Sender: TEVA
  Company Number: US-TEVA-VS-3320789

PATIENT
  Age: 89 Year
  Sex: Male

DRUGS (1)
  1. BRINZOLAMIDE [Suspect]
     Active Substance: BRINZOLAMIDE
     Indication: Product used for unknown indication
     Dosage: 1% OPTHALMIC SUSPENSION
     Route: 047
     Dates: start: 202501

REACTIONS (3)
  - Diarrhoea haemorrhagic [Unknown]
  - Flatulence [Unknown]
  - Anal incontinence [Not Recovered/Not Resolved]

NARRATIVE: CASE EVENT DATE: 20250101
